FAERS Safety Report 19527347 (Version 1)
Quarter: 2021Q3

REPORT INFORMATION
  Report Type: Spontaneous
  Country: FR (occurrence: FR)
  Receive Date: 20210713
  Receipt Date: 20210713
  Transmission Date: 20211014
  Serious: Yes (Hospitalization, Other)
  Sender: FDA-Public Use
  Company Number: FR-LUPIN PHARMACEUTICALS INC.-2021-11493

PATIENT
  Age: 60 Year
  Sex: Female

DRUGS (2)
  1. METHYLPREDNISOLONE. [Suspect]
     Active Substance: METHYLPREDNISOLONE
     Indication: BREAST CANCER METASTATIC
     Dosage: 48 MILLIGRAM, FOR 6 WEEKS, FOLLOWED BY 2 WEEKS TAPERING
     Route: 065
  2. TRASTUZUMAB. [Concomitant]
     Active Substance: TRASTUZUMAB
     Indication: BREAST CANCER METASTATIC
     Dosage: UNK
     Route: 065

REACTIONS (5)
  - Cellulitis gangrenous [Recovered/Resolved]
  - Aspergillus infection [Recovered/Resolved]
  - Infarction [Recovered/Resolved]
  - Disseminated aspergillosis [Recovered/Resolved]
  - Thrombosis [Recovered/Resolved]
